FAERS Safety Report 16925941 (Version 11)
Quarter: 2020Q4

REPORT INFORMATION
  Report Type: Spontaneous
  Country: US (occurrence: US)
  Receive Date: 20191016
  Receipt Date: 20201109
  Transmission Date: 20210113
  Serious: Yes (Hospitalization, Other)
  Sender: FDA-Public Use
  Company Number: US-PFIZER INC-2019447933

PATIENT
  Age: 77 Year
  Sex: Female
  Weight: 116 kg

DRUGS (14)
  1. LETROZOLE. [Suspect]
     Active Substance: LETROZOLE
     Indication: HORMONE LEVEL ABNORMAL
     Dosage: UNK
  2. METOPROLOL TARTRATE. [Concomitant]
     Active Substance: METOPROLOL TARTRATE
     Indication: CARDIAC DISORDER
     Dosage: 50 MG, 2X/DAY
     Route: 048
     Dates: start: 201812
  3. IBRANCE [Suspect]
     Active Substance: PALBOCICLIB
     Dosage: UNK
  4. INSULIN [Concomitant]
     Active Substance: INSULIN NOS
     Indication: DIABETES MELLITUS
     Dosage: 33 IU, 1X/DAY
  5. IBRANCE [Suspect]
     Active Substance: PALBOCICLIB
     Dosage: 75 MG
  6. FUROSEMIDE. [Concomitant]
     Active Substance: FUROSEMIDE
     Indication: CARDIAC DISORDER
  7. FUROSEMIDE. [Concomitant]
     Active Substance: FUROSEMIDE
     Indication: DIURETIC THERAPY
  8. IBRANCE [Suspect]
     Active Substance: PALBOCICLIB
     Indication: BREAST CANCER FEMALE
     Dosage: 125 MG, 1X/DAY (TAKES AROUND THE SAME TIME EVERYDAY)
     Route: 048
  9. LETROZOLE. [Suspect]
     Active Substance: LETROZOLE
     Indication: BREAST CANCER METASTATIC
     Dosage: 2.5 MG, 1X/DAY
     Route: 048
     Dates: start: 2015
  10. LETROZOLE. [Suspect]
     Active Substance: LETROZOLE
     Dosage: 2.5 MG, DAILY
     Route: 048
     Dates: start: 2015
  11. IBRANCE [Suspect]
     Active Substance: PALBOCICLIB
     Indication: CANCER HORMONAL THERAPY
     Dosage: 125 MG, CYCLIC (21 DAYS ON AND OFF FOR 7 DAYS)
     Route: 048
  12. IBRANCE [Suspect]
     Active Substance: PALBOCICLIB
     Dosage: 100 MG
  13. ALBUTEROL. [Concomitant]
     Active Substance: ALBUTEROL
     Indication: DYSPNOEA
     Dosage: UNK (2.5MG/3MLSUPPOSED TO DO 2-3 TIMES A DAY)
     Dates: start: 201812
  14. FUROSEMIDE. [Concomitant]
     Active Substance: FUROSEMIDE
     Indication: PERICARDIAL EFFUSION
     Dosage: 40 MG, 1X/DAY
     Route: 048
     Dates: start: 201812

REACTIONS (14)
  - COVID-19 [Unknown]
  - Wound [Unknown]
  - Vaginal discharge [Not Recovered/Not Resolved]
  - Abdominal discomfort [Unknown]
  - Stomatitis [Recovered/Resolved]
  - Blood disorder [Unknown]
  - Headache [Unknown]
  - Dyspnoea [Recovered/Resolved with Sequelae]
  - Blood calcium increased [Unknown]
  - Vaginal haemorrhage [Not Recovered/Not Resolved]
  - Vulvovaginal pruritus [Unknown]
  - Anaemia [Unknown]
  - Cardiac disorder [Unknown]
  - Fungal infection [Unknown]

NARRATIVE: CASE EVENT DATE: 2018
